FAERS Safety Report 8135481-3 (Version None)
Quarter: 2012Q1

REPORT INFORMATION
  Report Type: 
  Country: None (occurrence: None)
  Receive Date: 20120210
  Receipt Date: 20110906
  Transmission Date: 20120608
  Serious: No
  Sender: FDA-Public Use
  Company Number: 2011GR_BP010975

PATIENT
  Age: 84 Year
  Sex: Male
  Weight: 80 kg

DRUGS (18)
  1. ISOSORBIDE MONONITRATE [Concomitant]
  2. OMEPRAZOLE [Concomitant]
  3. SIMVASTATIN [Concomitant]
  4. HYDROCHLORIDE (AMITRIPTYLINE) [Concomitant]
  5. ENALAPRIL MALEATE [Concomitant]
  6. GLICLAZIDE (GLICLAZIDE) [Concomitant]
  7. ACETAMINOPHEN [Concomitant]
  8. LORATADINE [Concomitant]
  9. FINASTERIDE [Suspect]
     Indication: PRODUCT USED FOR UNKNOWN INDICATION
  10. FLOXACILLIN SODIUM [Concomitant]
  11. BISOPROLOL FUMARATE [Concomitant]
  12. DOXAZOSIN MESYLATE [Concomitant]
  13. AMITRIPTYLINE HCL [Concomitant]
  14. NITROGLYCERIN [Concomitant]
  15. METFORMIN HCL [Concomitant]
  16. BETAHISTINE (BETAHISTINE) [Concomitant]
  17. CODEINE PHOSPHATE (CODEINE) [Concomitant]
  18. TAMSULOSIN HYDROCHLORIDE (TAMSULOSIN) [Concomitant]

REACTIONS (1)
  - DIARRHOEA [None]
